FAERS Safety Report 8414285-8 (Version None)
Quarter: 2012Q2

REPORT INFORMATION
  Report Type: 
  Country: None (occurrence: None)
  Receive Date: 20120605
  Receipt Date: 20120530
  Transmission Date: 20120825
  Serious: Yes (Other)
  Sender: FDA-Public Use
  Company Number: US-BAYER-2012-054937

PATIENT
  Age: 67 Year
  Sex: Female
  Weight: 63.039 kg

DRUGS (3)
  1. MULTI-VITAMINS [Suspect]
     Dosage: 1 U, QD
     Route: 048
     Dates: start: 20110101
  2. LANSOPRAZOLE [Concomitant]
  3. TRIAMTERENE AND HYDROCHLOROTHIAZIDE [Concomitant]

REACTIONS (2)
  - FOREIGN BODY [None]
  - CHOKING [None]
